FAERS Safety Report 9466542 (Version 2)
Quarter: 2013Q3

REPORT INFORMATION
  Report Type: Report from Study
  Country: GB (occurrence: GB)
  Receive Date: 20130820
  Receipt Date: 20130913
  Transmission Date: 20140515
  Serious: Yes (Hospitalization)
  Sender: FDA-Public Use
  Company Number: GB-ROCHE-1263901

PATIENT
  Age: 84 Year
  Sex: Female

DRUGS (2)
  1. RANIBIZUMAB [Suspect]
     Indication: AGE-RELATED MACULAR DEGENERATION
     Route: 050
     Dates: start: 20120720
  2. RANIBIZUMAB [Suspect]
     Route: 050
     Dates: start: 20120831

REACTIONS (11)
  - Musculoskeletal stiffness [Unknown]
  - Fall [Recovered/Resolved with Sequelae]
  - Asthenia [Recovered/Resolved with Sequelae]
  - Orthostatic hypotension [Unknown]
  - Pain [Recovered/Resolved with Sequelae]
  - Movement disorder [Recovered/Resolved with Sequelae]
  - Joint range of motion decreased [Recovered/Resolved with Sequelae]
  - Arthropathy [Unknown]
  - Myalgia [Recovered/Resolved with Sequelae]
  - Dizziness [Recovered/Resolved with Sequelae]
  - Polymyalgia rheumatica [Unknown]
